FAERS Safety Report 13983721 (Version 3)
Quarter: 2017Q4

REPORT INFORMATION
  Report Type: Spontaneous
  Country: JP (occurrence: JP)
  Receive Date: 20170918
  Receipt Date: 20171025
  Transmission Date: 20180321
  Serious: Yes (Hospitalization)
  Sender: FDA-Public Use
  Company Number: JP-BAYER-2017-176598

PATIENT
  Age: 79 Year
  Sex: Male
  Weight: 62 kg

DRUGS (7)
  1. PLETAAL [Concomitant]
     Active Substance: CILOSTAZOL
     Indication: CEREBRAL INFARCTION
     Dosage: 200 MG DAILY
     Route: 048
     Dates: start: 201601
  2. BAYASPIRIN 100 MG [Suspect]
     Active Substance: ASPIRIN
     Indication: CEREBRAL INFARCTION
     Dosage: DAILY DOSE 100 MG
     Route: 048
     Dates: start: 201601
  3. TAKEPRON [Concomitant]
     Active Substance: LANSOPRAZOLE
     Indication: PROPHYLAXIS AGAINST GASTROINTESTINAL ULCER
     Dosage: 15 MG DAILY
     Route: 048
     Dates: start: 201601
  4. NORVASC [Concomitant]
     Active Substance: AMLODIPINE BESYLATE
     Indication: HYPERTENSION
     Dosage: 7.5 MG DAILY
     Route: 048
     Dates: start: 201601
  5. IOPAMIRON [Suspect]
     Active Substance: IOPAMIDOL
     Indication: ANGIOGRAM CEREBRAL
     Dosage: 80 ML, ONCE
     Route: 013
     Dates: start: 20160309, end: 20160309
  6. CILOSTAZOL. [Concomitant]
     Active Substance: CILOSTAZOL
     Dosage: DAILY DOSE 200 MG
  7. FEBUXOSTAT. [Concomitant]
     Active Substance: FEBUXOSTAT
     Indication: HYPERURICAEMIA
     Dosage: 10 MG DAILY
     Route: 048
     Dates: start: 201601

REACTIONS (4)
  - Altered state of consciousness [Recovered/Resolved]
  - Contrast encephalopathy [Recovered/Resolved]
  - Hemiplegia [Recovered/Resolved]
  - Disturbance in attention [Recovered/Resolved]

NARRATIVE: CASE EVENT DATE: 20160309
